FAERS Safety Report 16664027 (Version 7)
Quarter: 2022Q3

REPORT INFORMATION
  Report Type: Report from Study
  Country: US (occurrence: US)
  Receive Date: 20190802
  Receipt Date: 20220826
  Transmission Date: 20221027
  Serious: Yes (Life-Threatening, Hospitalization)
  Sender: FDA-Public Use
  Company Number: US-TESAROUBC-2019-TSO02751-US

PATIENT

DRUGS (39)
  1. NIRAPARIB [Suspect]
     Active Substance: NIRAPARIB
     Indication: Ovarian cancer
     Dosage: 300 MG
     Route: 048
     Dates: start: 20190705, end: 20190718
  2. NIRAPARIB [Suspect]
     Active Substance: NIRAPARIB
     Dosage: 300 MG
     Route: 048
     Dates: end: 20190719
  3. PLACEBO [Suspect]
     Active Substance: UNSPECIFIED INGREDIENT
     Indication: Ovarian cancer
     Dosage: 500 MG
     Route: 042
     Dates: start: 20190301, end: 20190301
  4. PLACEBO [Suspect]
     Active Substance: UNSPECIFIED INGREDIENT
     Dosage: 500 MG
     Route: 042
     Dates: start: 20190524, end: 20190524
  5. PLACEBO [Suspect]
     Active Substance: UNSPECIFIED INGREDIENT
     Dosage: UNK
     Route: 042
     Dates: start: 20190614, end: 20190614
  6. CARBOPLATIN [Suspect]
     Active Substance: CARBOPLATIN
     Indication: Ovarian cancer
     Dosage: 5 AUC
     Route: 042
     Dates: start: 20190208, end: 20190208
  7. CARBOPLATIN [Suspect]
     Active Substance: CARBOPLATIN
     Dosage: 360 AUC
     Route: 042
     Dates: start: 20190524, end: 20190524
  8. PACLITAXEL [Suspect]
     Active Substance: PACLITAXEL
     Indication: Ovarian cancer
     Dosage: 330 MG
     Route: 042
     Dates: start: 20190208, end: 20190208
  9. PACLITAXEL [Suspect]
     Active Substance: PACLITAXEL
     Dosage: 140 MG
     Route: 042
     Dates: start: 20190524, end: 20190524
  10. BEVACIZUMAB [Suspect]
     Active Substance: BEVACIZUMAB
     Indication: Ovarian cancer
     Dosage: UNK
     Route: 042
  11. BEVACIZUMAB [Suspect]
     Active Substance: BEVACIZUMAB
     Dosage: 1300 MG/KG
     Route: 042
     Dates: start: 20190524, end: 20190524
  12. DOCETAXEL [Concomitant]
     Active Substance: DOCETAXEL
     Indication: Ovarian cancer
     Dosage: UNK
  13. CISPLATIN [Concomitant]
     Active Substance: CISPLATIN
     Indication: Ovarian cancer
     Dosage: UNK
  14. POTASSIUM [Concomitant]
     Active Substance: POTASSIUM
     Indication: Intestinal obstruction
     Dosage: 75 ML, Z
     Route: 042
     Dates: start: 20190626, end: 20190630
  15. CALCIUM CARBONATE [Concomitant]
     Active Substance: CALCIUM CARBONATE
     Indication: Dyspepsia
     Dosage: 500 MG, PRN
     Route: 048
     Dates: start: 20190628
  16. CALCIUM CARBONATE [Concomitant]
     Active Substance: CALCIUM CARBONATE
     Indication: Intestinal obstruction
  17. GASTROGRAFIN [Concomitant]
     Active Substance: DIATRIZOATE MEGLUMINE\DIATRIZOATE SODIUM
     Indication: Small intestinal obstruction
     Dosage: 240 ML, SINGLE
     Route: 048
     Dates: start: 20190627, end: 20190627
  18. KETOROLAC [Concomitant]
     Active Substance: KETOROLAC TROMETHAMINE
     Indication: Abdominal pain
     Dosage: 15 MG, PRN
     Route: 042
     Dates: start: 20190627, end: 20190630
  19. MAGNESIUM SULFATE [Concomitant]
     Active Substance: MAGNESIUM SULFATE
     Indication: Hypomagnesaemia
     Dosage: 2 G, SINGLE
     Route: 042
     Dates: start: 20190627, end: 20190627
  20. PHENOL EZ [Concomitant]
     Indication: Gastrointestinal tube insertion
     Dosage: 2 UNK, PRN
     Route: 048
     Dates: start: 20190627, end: 20190630
  21. OMEPRAZOLE [Concomitant]
     Active Substance: OMEPRAZOLE
     Indication: Gastrooesophageal reflux disease
     Dosage: 40 MG, QD
     Route: 042
     Dates: start: 20190627, end: 20190630
  22. FENTANYL [Concomitant]
     Active Substance: FENTANYL
     Indication: Gastrointestinal tube insertion
     Dosage: 50 ?G, SINGLE
     Route: 042
     Dates: start: 20190626, end: 20190626
  23. OXYCODONE [Concomitant]
     Active Substance: OXYCODONE
     Indication: Abdominal pain
     Dosage: 2.5-10 MG, PRN
     Route: 048
     Dates: start: 20190626, end: 20190630
  24. LORAZEPAM [Concomitant]
     Active Substance: LORAZEPAM
     Indication: Gastrointestinal tube insertion
     Dosage: 1 MG, SINGLE
     Route: 042
     Dates: start: 20190626, end: 20190626
  25. ONDANSETRON [Concomitant]
     Active Substance: ONDANSETRON
     Indication: Nausea
     Dosage: 4 MG, PRN
     Route: 042
     Dates: start: 20190626, end: 20190630
  26. ONDANSETRON [Concomitant]
     Active Substance: ONDANSETRON
     Indication: Intestinal obstruction
  27. PROCHLORPERAZINE [Concomitant]
     Active Substance: PROCHLORPERAZINE
     Indication: Nausea
     Dosage: 5 MG, PRN
     Route: 042
     Dates: start: 20190626, end: 20190630
  28. PROCHLORPERAZINE [Concomitant]
     Active Substance: PROCHLORPERAZINE
     Indication: Intestinal obstruction
  29. DOCUSATE SODIUM\SENNA LEAF [Concomitant]
     Active Substance: DOCUSATE SODIUM\SENNA LEAF
     Indication: Constipation
     Dosage: 8.6/50 MG, BID
     Route: 048
     Dates: start: 20190626, end: 20190630
  30. ENOXAPARIN [Concomitant]
     Active Substance: ENOXAPARIN
     Indication: Thrombosis prophylaxis
     Dosage: 40 MG, QD
     Route: 058
     Dates: start: 20190627, end: 20190630
  31. PREDNISONE [Concomitant]
     Active Substance: PREDNISONE
     Indication: Rash maculo-papular
     Dosage: 30 MG, QD
     Route: 048
     Dates: start: 20190705, end: 20190709
  32. PREDNISONE [Concomitant]
     Active Substance: PREDNISONE
     Dosage: 20 MG, QD
     Route: 048
     Dates: start: 20190710, end: 20190714
  33. PREDNISONE [Concomitant]
     Active Substance: PREDNISONE
     Dosage: 10 MG, QD
     Route: 048
     Dates: start: 20190715, end: 20190719
  34. PREDNISONE [Concomitant]
     Active Substance: PREDNISONE
     Dosage: 5 MG, QD
     Route: 048
     Dates: start: 20190720, end: 20190724
  35. LISINOPRIL [Concomitant]
     Active Substance: LISINOPRIL
     Indication: Hypertension
     Dosage: 20 MG, QD
     Route: 048
     Dates: start: 20190712
  36. SODIUM CHLORIDE [Concomitant]
     Active Substance: SODIUM CHLORIDE
     Indication: Hyponatraemia
     Dosage: 1000 ML, PRN
     Route: 042
     Dates: start: 20190711
  37. BACTRIM DS [Concomitant]
     Active Substance: SULFAMETHOXAZOLE\TRIMETHOPRIM
     Indication: Urinary tract infection
     Dosage: 800/160 MG, BID
     Route: 048
     Dates: start: 20190711, end: 20190718
  38. ZARXIO [Concomitant]
     Active Substance: FILGRASTIM-SNDZ
     Indication: Neutropenia
     Dosage: 300 UG, SINGLE
     Route: 058
     Dates: start: 20190723, end: 20190723
  39. ZARXIO [Concomitant]
     Active Substance: FILGRASTIM-SNDZ
     Dosage: 480 UG, QD
     Route: 058
     Dates: start: 20190724, end: 20190726

REACTIONS (1)
  - Pancytopenia [Recovered/Resolved]

NARRATIVE: CASE EVENT DATE: 20190726
